FAERS Safety Report 5170724-X (Version None)
Quarter: 2006Q4

REPORT INFORMATION
  Report Type: 
  Country: None (occurrence: None)
  Receive Date: 20060919
  Receipt Date: 20060530
  Transmission Date: 20070319
  Serious: No
  Sender: FDA-Public Use
  Company Number: 2006US001198

PATIENT
  Age: 77 Year
  Sex: Female

DRUGS (3)
  1. VESICARE [Suspect]
     Indication: HYPERTONIC BLADDER
     Dosage: 5 MG, ORAL
     Route: 048
     Dates: end: 20060201
  2. LIPITOR [Concomitant]
  3. OMEPRAZOLE [Concomitant]

REACTIONS (1)
  - NOCTURIA [None]
